FAERS Safety Report 8219133-7 (Version None)
Quarter: 2012Q1

REPORT INFORMATION
  Report Type: 
  Country: None (occurrence: None)
  Receive Date: 20120319
  Receipt Date: 20120312
  Transmission Date: 20120608
  Serious: Yes (Other)
  Sender: FDA-Public Use
  Company Number: US-BAYER-2012-024469

PATIENT
  Sex: Female

DRUGS (2)
  1. YAZ [Suspect]
     Dosage: UNK
     Dates: start: 20051001, end: 20090801
  2. YASMIN [Suspect]
     Dosage: UNK
     Dates: start: 20051001, end: 20090801

REACTIONS (1)
  - CHOLECYSTECTOMY [None]
